FAERS Safety Report 9372366 (Version 1)
Quarter: 2013Q2

REPORT INFORMATION
  Report Type: Report from Study
  Country: US (occurrence: US)
  Receive Date: 20130627
  Receipt Date: 20130627
  Transmission Date: 20140414
  Serious: Yes (Other)
  Sender: FDA-Public Use
  Company Number: US-MYLANLABS-2012S1021784

PATIENT
  Age: 35 Year
  Sex: Male

DRUGS (6)
  1. CLOZAPINE TABLETS [Suspect]
     Indication: SCHIZOPHRENIA, UNDIFFERENTIATED TYPE
     Dates: start: 20070206, end: 20130306
  2. DIVALPROEX SODIUM DELAYED-RELEASE CAPSULES USP [Concomitant]
     Dosage: 1 TAB QAM AND 2 TABS QHS
  3. GEMFIBROZIL [Concomitant]
     Dosage: BEFORE FOOD
  4. OMEPRAZOLE [Concomitant]
  5. SINGULAR [Concomitant]
  6. VITAMIN D [Concomitant]

REACTIONS (2)
  - Granulocytopenia [Recovered/Resolved]
  - Leukopenia [Recovered/Resolved]
